FAERS Safety Report 5748957-0 (Version None)
Quarter: 2008Q2

REPORT INFORMATION
  Report Type: 
  Country: None (occurrence: None)
  Receive Date: 20080527
  Receipt Date: 20080520
  Transmission Date: 20081010
  Serious: Yes (Hospitalization)
  Sender: FDA-Public Use
  Company Number: IN-RANBAXY-2008RR-15316

PATIENT

DRUGS (2)
  1. PENTAZOCINE LACTATE [Suspect]
     Indication: ABDOMINAL PAIN
     Dosage: 120 MG, QD
     Route: 030
  2. PHENERGAN [Concomitant]
     Dosage: UNK
     Route: 030

REACTIONS (1)
  - MUSCLE FIBROSIS [None]
